FAERS Safety Report 7795784 (Version 2)
Quarter: 2013Q1

REPORT INFORMATION
  Report Type: Spontaneous
  Country: US (occurrence: None)
  Receive Date: 20110118
  Receipt Date: 20121017
  Transmission Date: 20140127
  Serious: Yes (Other)
  Sender: FDA-Public Use
  Company Number: 2011MA000146

PATIENT
  Sex: Female
  Weight: 58.51 kg

DRUGS (20)
  1. METOCLOPRAMIDE [Suspect]
     Indication: NAUSEA
     Dosage: PO
     Route: 048
     Dates: start: 2007, end: 20090319
  2. AMITRIPTYLINE [Concomitant]
  3. BACLOFEN [Concomitant]
  4. BUTALBITAL/APAP [Concomitant]
  5. CARAFATE [Concomitant]
  6. CITALOPRAM [Concomitant]
  7. HYDROCODONE [Concomitant]
  8. IBUPROFEN [Concomitant]
  9. INDERAL [Concomitant]
  10. LORATADINE [Concomitant]
  11. LORAZEPAM [Concomitant]
  12. NAPROXEN [Concomitant]
  13. ONDANSETRON [Concomitant]
  14. PHENERGAN [Concomitant]
  15. PREVACID [Concomitant]
  16. PROMETHAZINE [Concomitant]
  17. PROPRANOLOL [Concomitant]
  18. TOPAMAX [Concomitant]
  19. TRAMADOL [Concomitant]
  20. ZOMIG [Concomitant]

REACTIONS (39)
  - Tardive dyskinesia [None]
  - Dystonia [None]
  - Extrapyramidal disorder [None]
  - Emotional disorder [None]
  - Economic problem [None]
  - Palpitations [None]
  - Anxiety [None]
  - Tremor [None]
  - Abdominal pain upper [None]
  - Stress [None]
  - Nausea [None]
  - Vomiting [None]
  - Headache [None]
  - Gastrooesophageal reflux disease [None]
  - Affective disorder [None]
  - Victim of crime [None]
  - Chest pain [None]
  - Dysphonia [None]
  - Oropharyngeal pain [None]
  - Dysphagia [None]
  - Painful respiration [None]
  - Neck pain [None]
  - Musculoskeletal chest pain [None]
  - Paraesthesia [None]
  - Pyrexia [None]
  - Oropharyngeal pain [None]
  - Tearfulness [None]
  - Somnolence [None]
  - Muscle strain [None]
  - Irritable bowel syndrome [None]
  - Thinking abnormal [None]
  - Constipation [None]
  - Infection parasitic [None]
  - Tachycardia [None]
  - Bruxism [None]
  - Depression [None]
  - Gastrointestinal disorder [None]
  - Musculoskeletal chest pain [None]
  - Major depression [None]
